FAERS Safety Report 25788246 (Version 2)
Quarter: 2025Q3

REPORT INFORMATION
  Report Type: Spontaneous
  Country: US (occurrence: US)
  Receive Date: 20250910
  Receipt Date: 20250926
  Transmission Date: 20251020
  Serious: Yes (Hospitalization, Congenital Anomaly)
  Sender: MYLAN
  Company Number: US-MYLANLABS-2025M1076263

PATIENT

DRUGS (5)
  1. PREDNISONE [Suspect]
     Active Substance: PREDNISONE
     Indication: Drug-induced liver injury
     Dosage: 60 MILLIGRAM, QD
  2. PREDNISONE [Suspect]
     Active Substance: PREDNISONE
     Dosage: 30 MILLIGRAM, QD
  3. PREDNISONE [Suspect]
     Active Substance: PREDNISONE
  4. HUMAN IMMUNOGLOBULIN G [Suspect]
     Active Substance: HUMAN IMMUNOGLOBULIN G
     Indication: Gestational alloimmune liver disease
  5. HUMAN IMMUNOGLOBULIN G [Suspect]
     Active Substance: HUMAN IMMUNOGLOBULIN G
     Dosage: UNK, QW

REACTIONS (2)
  - Foetal exposure during pregnancy [Unknown]
  - Adrenal insufficiency neonatal [Unknown]
